FAERS Safety Report 16925601 (Version 1)
Quarter: 2019Q4

REPORT INFORMATION
  Report Type: Spontaneous
  Country: US (occurrence: US)
  Receive Date: 20191016
  Receipt Date: 20191016
  Transmission Date: 20200122
  Serious: No
  Sender: FDA-Public Use
  Company Number: US-BAUSCH-BL-2019-054433

PATIENT
  Sex: Female

DRUGS (3)
  1. JUBLIA [Suspect]
     Active Substance: EFINACONAZOLE
     Dosage: SECOND NEW BOTTLE; STOP DATE: STOPPED THE NEW BOTTLE FOR ABOUT A WEEK; DOSE: ONE (UNITS UNSPECIFIED)
     Route: 061
     Dates: start: 20190730, end: 2019
  2. JUBLIA [Suspect]
     Active Substance: EFINACONAZOLE
     Indication: ONYCHOMYCOSIS
     Dosage: FIRST BOTTLE; DOSE: ONE (UNITS UNSPECIFIED)
     Route: 061
     Dates: start: 201904, end: 2019
  3. JUBLIA [Suspect]
     Active Substance: EFINACONAZOLE
     Dosage: STARTED BACK UP ON THE PRODUCT; STOP DATE: ABOUT A WEEK AGO; DOSE: ONE (UNITS UNSPECIFIED)
     Route: 061
     Dates: start: 2019, end: 201909

REACTIONS (4)
  - Hyperkeratosis [Not Recovered/Not Resolved]
  - Product quality issue [Unknown]
  - Skin fissures [Recovered/Resolved]
  - Skin discolouration [Not Recovered/Not Resolved]

NARRATIVE: CASE EVENT DATE: 2019
